FAERS Safety Report 6107820-6 (Version None)
Quarter: 2009Q1

REPORT INFORMATION
  Report Type: 
  Country: None (occurrence: None)
  Receive Date: 20090309
  Receipt Date: 20090306
  Transmission Date: 20090719
  Serious: Yes (Other)
  Sender: FDA-Public Use
  Company Number: D0060746A

PATIENT
  Age: 56 Year
  Sex: Female
  Weight: 100 kg

DRUGS (2)
  1. ELONTRIL [Suspect]
     Dosage: 4500MG PER DAY
     Route: 048
     Dates: start: 20090305, end: 20090305
  2. ALCOHOL [Suspect]
     Route: 048
     Dates: start: 20090305, end: 20090305

REACTIONS (2)
  - OVERDOSE [None]
  - SUICIDE ATTEMPT [None]
